FAERS Safety Report 25979486 (Version 1)
Quarter: 2025Q4

REPORT INFORMATION
  Report Type: Spontaneous
  Country: US (occurrence: None)
  Receive Date: 20251029
  Receipt Date: 20251029
  Transmission Date: 20260118
  Serious: Yes (Other)
  Sender: FDA-CTU
  Company Number: None

PATIENT
  Age: 59 Year
  Sex: Male
  Weight: 138 kg

DRUGS (4)
  1. OZEMPIC [Suspect]
     Active Substance: SEMAGLUTIDE
     Indication: Diabetes mellitus
     Dosage: OTHER FREQUENCY : ONCE WEEKLY;?
     Route: 058
     Dates: start: 20250907, end: 20251001
  2. OZEMPIC [Suspect]
     Active Substance: SEMAGLUTIDE
     Indication: Obesity
  3. HYDROCHLOROTHIAZIDE [Concomitant]
     Active Substance: HYDROCHLOROTHIAZIDE
     Dates: start: 20231008
  4. TERBINAFINE [Concomitant]
     Active Substance: TERBINAFINE
     Dates: start: 20241125

REACTIONS (5)
  - Dizziness [None]
  - Fatigue [None]
  - Urticaria [None]
  - Fatigue [None]
  - Asthenia [None]

NARRATIVE: CASE EVENT DATE: 20250907
